FAERS Safety Report 5834378-9 (Version None)
Quarter: 2008Q3

REPORT INFORMATION
  Report Type: 
  Country: None (occurrence: None)
  Receive Date: 20080731
  Receipt Date: 20080725
  Transmission Date: 20090109
  Serious: Yes (Other)
  Sender: FDA-Public Use
  Company Number: 2008SP010867

PATIENT
  Age: 2 Year
  Sex: Male

DRUGS (4)
  1. CHILDREN'S CLARITIN (5 MG) [Suspect]
     Indication: EYE PRURITUS
     Dosage: PO
     Route: 048
     Dates: start: 20080516, end: 20080527
  2. CHILDREN'S CLARITIN (5 MG) [Suspect]
     Indication: LACRIMATION INCREASED
     Dosage: PO
     Route: 048
     Dates: start: 20080516, end: 20080527
  3. CHILDREN'S CLARITIN (5 MG) [Suspect]
     Indication: RHINORRHOEA
     Dosage: PO
     Route: 048
     Dates: start: 20080516, end: 20080527
  4. CHILDREN'S CLARITIN (5 MG) [Suspect]
     Indication: SNEEZING
     Dosage: PO
     Route: 048
     Dates: start: 20080516, end: 20080527

REACTIONS (6)
  - ANXIETY [None]
  - BALANCE DISORDER [None]
  - CHILLS [None]
  - CRYING [None]
  - GAIT DISTURBANCE [None]
  - THIRST [None]
